FAERS Safety Report 14260067 (Version 2)
Quarter: 2018Q1

REPORT INFORMATION
  Report Type: Spontaneous
  Country: US (occurrence: US)
  Receive Date: 20171207
  Receipt Date: 20180111
  Transmission Date: 20180508
  Serious: Yes (Other)
  Sender: FDA-Public Use
  Company Number: US-VIFOR (INTERNATIONAL) INC.-VIT-2017-08434

PATIENT
  Sex: Female

DRUGS (15)
  1. CYANOCOBALAMIN. [Concomitant]
     Active Substance: CYANOCOBALAMIN
  2. PHOSLO [Concomitant]
     Active Substance: CALCIUM ACETATE
  3. LEVEMIR [Concomitant]
     Active Substance: INSULIN DETEMIR
  4. NEPHRO-VITE [Concomitant]
  5. FUROSEMIDE. [Concomitant]
     Active Substance: FUROSEMIDE
  6. VENLAFAXINE HYDROCHLORIDE. [Concomitant]
     Active Substance: VENLAFAXINE HYDROCHLORIDE
  7. DILTIAZEM HYDROCHLORIDE. [Concomitant]
     Active Substance: DILTIAZEM HYDROCHLORIDE
  8. VELTASSA [Suspect]
     Active Substance: PATIROMER
  9. LEVOTHYROXINE SODIUM. [Concomitant]
     Active Substance: LEVOTHYROXINE SODIUM
  10. FISH OIL [Concomitant]
     Active Substance: FISH OIL
  11. ACETYLSALICYLIC ACID [Concomitant]
     Active Substance: ASPIRIN
  12. VELTASSA [Suspect]
     Active Substance: PATIROMER
     Indication: HYPERKALAEMIA
     Route: 048
     Dates: start: 20160714
  13. ERGOCALCIFEROL. [Concomitant]
     Active Substance: ERGOCALCIFEROL
  14. PRAVASTATIN SODIUM. [Concomitant]
     Active Substance: PRAVASTATIN SODIUM
  15. PANTOPRAZOLE SODIUM SESQUIHYDRATE [Concomitant]
     Active Substance: PANTOPRAZOLE SODIUM

REACTIONS (3)
  - Renal transplant [Unknown]
  - Off label use [Unknown]
  - Blood potassium increased [Recovered/Resolved]
